FAERS Safety Report 9298315 (Version 1)
Quarter: 2013Q2

REPORT INFORMATION
  Report Type: Spontaneous
  Country: US (occurrence: None)
  Receive Date: 20130515
  Receipt Date: 20130515
  Transmission Date: 20140414
  Serious: Yes (Life-Threatening, Other)
  Sender: FDA-Public Use
  Company Number: 001532600A

PATIENT
  Age: 35 Year
  Sex: Female

DRUGS (4)
  1. PROACTIV RENEWING CLEANSER [Suspect]
     Indication: ACNE
     Dosage: TWICE DAILY DERMAL
     Dates: start: 20130408, end: 20130424
  2. PROACTIV REPAIRING TREATMENT [Concomitant]
     Dosage: TWICE DAILY DERMAL
     Dates: start: 20130408, end: 20130424
  3. PROACTIV OIL FREE MOISTURIZER SPF 15 [Suspect]
     Dosage: TWICE DAILY DERMAL
     Dates: start: 20130408, end: 20130424
  4. PROACTIV REFINING MASK [Suspect]
     Dosage: TWICE DAILY DERMAL
     Dates: start: 20130408, end: 20130424

REACTIONS (3)
  - Swelling face [None]
  - Pruritus [None]
  - Eyelid oedema [None]
